FAERS Safety Report 4941699-0 (Version None)
Quarter: 2006Q1

REPORT INFORMATION
  Report Type: 
  Country: None (occurrence: None)
  Receive Date: 20060308
  Receipt Date: 20060222
  Transmission Date: 20060701
  Serious: Yes (Death)
  Sender: FDA-Public Use
  Company Number: 2006028913

PATIENT
  Sex: 0

DRUGS (3)
  1. METHYLPREDNISOLONE SODIUM SUCCINATE [Suspect]
     Indication: THYMOMA
     Dosage: 1000MG (DAY 1-4); 500MG (DAY 5, 6), INTRAVENOUS
     Route: 042
  2. CISPLATIN [Suspect]
     Indication: THYMOMA
     Dosage: 20 MG/M*2, INTRAVENOUS
     Route: 042
  3. DOXORUBICIN (DOXORUBICIN) [Suspect]
     Indication: THYMOMA
     Dosage: 40 MG/M*2, INTRAVENOUS
     Route: 042

REACTIONS (1)
  - DEATH [None]
